FAERS Safety Report 4369744-4 (Version None)
Quarter: 2004Q2

REPORT INFORMATION
  Report Type: 
  Country: None (occurrence: None)
  Receive Date: 20040528
  Receipt Date: 20040519
  Transmission Date: 20050107
  Serious: Yes (Hospitalization, Disabling)
  Sender: FDA-Public Use
  Company Number: 2004023260

PATIENT
  Age: 75 Year
  Sex: Female

DRUGS (1)
  1. TIKOSYN [Suspect]
     Indication: ILL-DEFINED DISORDER

REACTIONS (4)
  - ANTINUCLEAR ANTIBODY POSITIVE [None]
  - HAEMOPTYSIS [None]
  - RENAL FAILURE [None]
  - VASCULITIS [None]
